FAERS Safety Report 19685260 (Version 3)
Quarter: 2021Q3

REPORT INFORMATION
  Report Type: Spontaneous
  Country: JP (occurrence: JP)
  Receive Date: 20210811
  Receipt Date: 20210907
  Transmission Date: 20211014
  Serious: Yes (Hospitalization)
  Sender: FDA-Public Use
  Company Number: JP-BAYER-2021-189283

PATIENT
  Age: 88 Year
  Sex: Male

DRUGS (2)
  1. NUBEQA [Suspect]
     Active Substance: DAROLUTAMIDE
     Indication: PROSTATE CANCER RECURRENT
     Dosage: 300 MG, BID
     Route: 048
     Dates: start: 20210701, end: 20210708
  2. COMIRNATY [Suspect]
     Active Substance: TOZINAMERAN
     Indication: IMMUNISATION
     Dosage: 0.3 ML, ONCE
     Route: 030
     Dates: start: 20210708, end: 20210708

REACTIONS (5)
  - Rash erythematous [Recovered/Resolved]
  - Dizziness [None]
  - Pyrexia [Recovered/Resolved]
  - Off label use [None]
  - Pruritus [Recovered/Resolved]

NARRATIVE: CASE EVENT DATE: 20210701
